FAERS Safety Report 5416406-8 (Version None)
Quarter: 2007Q3

REPORT INFORMATION
  Report Type: 
  Country: None (occurrence: None)
  Receive Date: 20070814
  Receipt Date: 20070806
  Transmission Date: 20080115
  Serious: Yes (Hospitalization)
  Sender: FDA-Public Use
  Company Number: 163-21880-07060325

PATIENT
  Age: 77 Year
  Sex: Male

DRUGS (3)
  1. REVLIMID [Suspect]
     Indication: MULTIPLE MYELOMA
     Dosage: 10 MG, QD, ORAL
     Route: 048
     Dates: start: 20070523, end: 20070611
  2. MELPHALAN (MELPHALAN) [Concomitant]
  3. PREDNISONE TAB [Concomitant]

REACTIONS (7)
  - ABDOMINAL PAIN UPPER [None]
  - ASTHENIA [None]
  - FATIGUE [None]
  - HYPERCALCAEMIA [None]
  - NAUSEA [None]
  - VITREOUS FLOATERS [None]
  - VOMITING [None]
